FAERS Safety Report 4377781-9 (Version None)
Quarter: 2004Q2

REPORT INFORMATION
  Report Type: 
  Country: None (occurrence: None)
  Receive Date: 20040615
  Receipt Date: 20040615
  Transmission Date: 20050107
  Serious: Yes (Other)
  Sender: FDA-Public Use
  Company Number: None

PATIENT
  Sex: Female
  Weight: 63.5036 kg

DRUGS (2)
  1. PAROXETINE HCL [Suspect]
     Indication: ANXIETY
     Dosage: ONCE DAY ORAL
     Route: 048
     Dates: start: 20010901, end: 20040601
  2. PAROXETINE HCL [Suspect]
     Indication: DEPRESSION
     Dosage: ONCE DAY ORAL
     Route: 048
     Dates: start: 20010901, end: 20040601

REACTIONS (4)
  - ACTIVITIES OF DAILY LIVING IMPAIRED [None]
  - DISTURBANCE IN ATTENTION [None]
  - DRUG WITHDRAWAL SYNDROME [None]
  - PYREXIA [None]
